FAERS Safety Report 9591984 (Version 1)
Quarter: 2013Q4

REPORT INFORMATION
  Report Type: Spontaneous
  Country: CA (occurrence: CA)
  Receive Date: 20131004
  Receipt Date: 20131004
  Transmission Date: 20140711
  Serious: Yes (Hospitalization)
  Sender: FDA-Public Use
  Company Number: CA-ROCHE-1283195

PATIENT
  Age: 31 Year
  Sex: Male
  Weight: 75 kg

DRUGS (2)
  1. ZELBORAF [Suspect]
     Indication: PRODUCT USED FOR UNKNOWN INDICATION
     Dosage: THERAPY DURATION:  26.0 DAY(S)
     Route: 048
  2. TYLENOL [Concomitant]
     Route: 065

REACTIONS (1)
  - Drug-induced liver injury [Recovered/Resolved]
